FAERS Safety Report 23995686 (Version 1)
Quarter: 2024Q2

REPORT INFORMATION
  Report Type: Spontaneous
  Country: US (occurrence: None)
  Receive Date: 20240619
  Receipt Date: 20240619
  Transmission Date: 20240716
  Serious: Yes (Disabling, Other)
  Sender: FDA-Public Use
  Company Number: None

PATIENT
  Age: 62 Year
  Sex: Female
  Weight: 76.5 kg

DRUGS (15)
  1. SUBLOCADE [Suspect]
     Active Substance: BUPRENORPHINE
     Indication: Product used for unknown indication
     Dates: start: 20230623, end: 20230923
  2. SUBOXONE [Concomitant]
  3. PERIATIN [Concomitant]
  4. LEXA [Concomitant]
  5. GABAPENTIN [Concomitant]
  6. HYDROXYZINE [Concomitant]
  7. MAGNESIUM [Concomitant]
  8. OXYBUTYNIN [Concomitant]
  9. CELEBREX [Concomitant]
     Active Substance: CELECOXIB
  10. OMEPRAZOLE [Concomitant]
     Active Substance: DONEPEZIL HYDROCHLORIDE\OMEPRAZOLE\OMEPRAZOLE MAGNESIUM
  11. TYLENOL [Concomitant]
  12. ALEVE [Concomitant]
     Active Substance: NAPROXEN SODIUM
  13. MELATONIN [Concomitant]
  14. unisom multi vitamin [Concomitant]
  15. B vitamin [Concomitant]

REACTIONS (2)
  - Weight increased [None]
  - Depression [None]

NARRATIVE: CASE EVENT DATE: 20230623
